FAERS Safety Report 23422218 (Version 2)
Quarter: 2024Q1

REPORT INFORMATION
  Report Type: Spontaneous
  Country: RU (occurrence: RU)
  Receive Date: 20240119
  Receipt Date: 20240201
  Transmission Date: 20240410
  Serious: Yes (Other)
  Sender: FDA-Public Use
  Company Number: RU-SA-SAC20240117000981

PATIENT

DRUGS (1)
  1. DUPILUMAB [Suspect]
     Active Substance: DUPILUMAB
     Dosage: UNK
     Route: 065
     Dates: start: 202308

REACTIONS (1)
  - Cutaneous T-cell lymphoma [Unknown]
